FAERS Safety Report 9613893 (Version 1)
Quarter: 2013Q4

REPORT INFORMATION
  Report Type: Spontaneous
  Country: DE (occurrence: DE)
  Receive Date: 20131010
  Receipt Date: 20131010
  Transmission Date: 20140711
  Serious: Yes (Hospitalization)
  Sender: FDA-Public Use
  Company Number: DE-009507513-1310DEU003447

PATIENT
  Age: 83 Year
  Sex: Male

DRUGS (1)
  1. NACOM 100 MG/25 MG RETARDTABLETTEN [Suspect]
     Indication: PARKINSON^S DISEASE
     Dosage: UNK
     Route: 048
     Dates: start: 2012

REACTIONS (2)
  - Coombs positive haemolytic anaemia [Unknown]
  - Autoimmune haemolytic anaemia [Unknown]
